FAERS Safety Report 5412194-X (Version None)
Quarter: 2007Q3

REPORT INFORMATION
  Report Type: 
  Country: None (occurrence: None)
  Receive Date: 20070809
  Receipt Date: 20070725
  Transmission Date: 20080115
  Serious: Yes (Other)
  Sender: FDA-Public Use
  Company Number: 07-001566

PATIENT
  Age: 34 Year
  Sex: Female
  Weight: 143.8 kg

DRUGS (3)
  1. LOESTRIN 24 FE [Suspect]
     Indication: UTERINE LEIOMYOMA
     Dosage: 20/1000 UG, QD; ORAL
     Route: 048
     Dates: start: 20070715, end: 20070718
  2. AVANDIA [Concomitant]
  3. GLIPIZIDE [Concomitant]

REACTIONS (7)
  - ABDOMINAL PAIN UPPER [None]
  - CHEST PAIN [None]
  - DYSPNOEA [None]
  - FEELING ABNORMAL [None]
  - METRORRHAGIA [None]
  - NAUSEA [None]
  - VOMITING [None]
